FAERS Safety Report 5716021-2 (Version None)
Quarter: 2008Q2

REPORT INFORMATION
  Report Type: 
  Country: None (occurrence: None)
  Receive Date: 20080424
  Receipt Date: 20080416
  Transmission Date: 20081010
  Serious: Yes (Death, Life-Threatening, Other)
  Sender: FDA-Public Use
  Company Number: JP-ELI_LILLY_AND_COMPANY-JP200803006028

PATIENT
  Sex: Female
  Weight: 50 kg

DRUGS (10)
  1. GEMCITABINE HCL [Suspect]
     Indication: BILE DUCT CANCER
     Dosage: 1460 MG, UNK
     Route: 042
     Dates: start: 20080228, end: 20080228
  2. TS 1 [Concomitant]
     Indication: BILE DUCT CANCER
     Dosage: 80 MG, DAILY (1/D)
     Route: 048
     Dates: start: 20080228, end: 20080303
  3. ANTIVIRALS NOS [Concomitant]
     Indication: HEPATITIS B
     Dosage: 0.5 MG, DAILY (1/D)
     Route: 048
     Dates: start: 20080226, end: 20080303
  4. LOXONIN [Concomitant]
     Indication: PAIN
     Dosage: 60 MG, 3/D
     Route: 048
     Dates: start: 20080218, end: 20080303
  5. MUCOSTA [Concomitant]
     Indication: GASTRITIS
     Dosage: 100 MG, 3/D
     Route: 048
     Dates: start: 20080226, end: 20080303
  6. NOVAMIN [Concomitant]
     Indication: PROPHYLAXIS
     Dosage: 5 MG, 3/D
     Route: 048
     Dates: start: 20080219, end: 20080303
  7. MAGMITT [Concomitant]
     Indication: PROPHYLAXIS
     Dosage: 330 MG, 3/D
     Route: 048
     Dates: start: 20080219, end: 20080303
  8. OXYCONTIN [Concomitant]
     Indication: PAIN
     Dosage: 80 MG, 2/D
     Route: 048
     Dates: start: 20080219
  9. OMEPRAL [Concomitant]
     Indication: GASTRITIS
     Dosage: 20 MG, DAILY (1/D)
     Route: 048
     Dates: start: 20080219, end: 20080303
  10. ANPEC [Concomitant]
     Indication: PAIN
     Dosage: UNK, AS NEEDED
     Route: 048

REACTIONS (5)
  - HAEMOGLOBIN DECREASED [None]
  - MALIGNANT NEOPLASM PROGRESSION [None]
  - PNEUMONIA [None]
  - PULMONARY EMBOLISM [None]
  - TUMOUR LYSIS SYNDROME [None]
